FAERS Safety Report 9336889 (Version 2)
Quarter: 2013Q3

REPORT INFORMATION
  Report Type: Report from Study
  Country: JP (occurrence: JP)
  Receive Date: 20130607
  Receipt Date: 20130812
  Transmission Date: 20140515
  Serious: Yes (Life-Threatening, Hospitalization)
  Sender: FDA-Public Use
  Company Number: JP-ROCHE-1231033

PATIENT
  Age: 96 Year
  Sex: Male

DRUGS (16)
  1. METHOXY POLYETHYLENE GLYCOL-EPOETIN BETA [Suspect]
     Indication: NEPHROGENIC ANAEMIA
     Route: 058
     Dates: start: 20120830, end: 20121027
  2. METHOXY POLYETHYLENE GLYCOL-EPOETIN BETA [Suspect]
     Indication: NEPHROGENIC ANAEMIA
     Route: 058
     Dates: start: 20130305
  3. THYRADIN [Concomitant]
     Route: 048
     Dates: end: 20121221
  4. LIVALO [Concomitant]
     Route: 048
     Dates: end: 20121221
  5. TAKEPRON [Concomitant]
     Route: 048
     Dates: end: 20121221
  6. LASIX [Concomitant]
     Route: 048
     Dates: end: 20121221
  7. FEBURIC [Concomitant]
     Route: 048
     Dates: end: 20121221
  8. NU-LOTAN [Concomitant]
     Route: 048
     Dates: end: 20121221
  9. MEMANTINE HYDROCHLORIDE [Concomitant]
     Dosage: DRUG REPORTED MEMARY
     Route: 048
     Dates: end: 20121221
  10. PURSENNID [Concomitant]
     Route: 048
     Dates: end: 20121221
  11. LENDORMIN D [Concomitant]
     Route: 048
     Dates: end: 20121221
  12. DUTASTERIDE [Concomitant]
     Route: 048
     Dates: end: 20121221
  13. URIEF [Concomitant]
     Route: 048
     Dates: end: 20121221
  14. SODIUM BICARBONATE [Concomitant]
     Dosage: DRUG REPORTED AS JUSO
     Route: 048
     Dates: start: 20120830, end: 20121221
  15. CRAVIT [Concomitant]
     Route: 048
     Dates: start: 20120830, end: 20120830
  16. CRAVIT [Concomitant]
     Route: 048
     Dates: start: 20120831, end: 20120903

REACTIONS (6)
  - Lung neoplasm malignant [Not Recovered/Not Resolved]
  - Ureteric cancer [Not Recovered/Not Resolved]
  - Bladder neoplasm [Recovering/Resolving]
  - Compression fracture [Recovered/Resolved]
  - Cystitis [Recovered/Resolved]
  - Fall [Unknown]
